FAERS Safety Report 16304576 (Version 1)
Quarter: 2019Q2

REPORT INFORMATION
  Report Type: Spontaneous
  Country: US (occurrence: US)
  Receive Date: 20190513
  Receipt Date: 20190513
  Transmission Date: 20190711
  Serious: No
  Sender: FDA-Public Use
  Company Number: US-IMPAX LABORATORIES, LLC-2019-IPXL-00372

PATIENT
  Sex: Male
  Weight: 63 kg

DRUGS (1)
  1. FLUDROCORTISONE ACETATE. [Suspect]
     Active Substance: FLUDROCORTISONE ACETATE
     Indication: PRODUCT USED FOR UNKNOWN INDICATION
     Dosage: UNK, 1MG HALF A TABLET IN A DAY
     Route: 048
     Dates: start: 201901

REACTIONS (1)
  - Urine cotinine test positive [Unknown]

NARRATIVE: CASE EVENT DATE: 201901
